FAERS Safety Report 4907266-X (Version None)
Quarter: 2006Q1

REPORT INFORMATION
  Report Type: 
  Country: None (occurrence: None)
  Receive Date: 20060207
  Receipt Date: 20060126
  Transmission Date: 20060701
  Serious: Yes (Death)
  Sender: FDA-Public Use
  Company Number: 25332

PATIENT
  Age: 15 Month
  Sex: Female

DRUGS (1)
  1. FLECAINIDE ACETATE [Suspect]
     Indication: WOLFF-PARKINSON-WHITE SYNDROME
     Dosage: 1 CC TID ORAL (1 DOSAGE FORMS, 3 IN 1 DAY(S)), ORAL
     Route: 048
     Dates: start: 20030101, end: 20041006

REACTIONS (2)
  - ACCIDENTAL OVERDOSE [None]
  - CARDIAC ARREST [None]
